FAERS Safety Report 4970509-0 (Version None)
Quarter: 2006Q2

REPORT INFORMATION
  Report Type: 
  Country: None (occurrence: None)
  Receive Date: 20060412
  Receipt Date: 20060222
  Transmission Date: 20061013
  Serious: Yes (Death, Life-Threatening)
  Sender: FDA-Public Use
  Company Number: IL-NOVOPROD-251093

PATIENT
  Age: 74 Year
  Sex: Female
  Weight: 76 kg

DRUGS (30)
  1. PHENYTOIN SODIUM [Concomitant]
     Dosage: 300 MG, QD
     Route: 048
     Dates: start: 20060211
  2. FAMOTIDINE [Concomitant]
     Indication: PEPTIC ULCER
     Dosage: 40 MG, QD
     Route: 048
     Dates: start: 20060211, end: 20060221
  3. DIPYRONE TAB [Concomitant]
     Dosage: UNK G, QD
     Route: 048
     Dates: start: 20060212
  4. ENALAPRIL MALEATE [Concomitant]
     Indication: HYPERTENSION
     Dosage: 10 MG, QD
     Route: 048
     Dates: start: 20060213, end: 20060219
  5. HYDROCHLOROTHIAZIDE [Concomitant]
     Dosage: 25 MG, QD
     Route: 048
     Dates: start: 20060213
  6. ATENOLOL [Concomitant]
     Indication: HEADACHE
     Dosage: 25 MG, QD
     Route: 048
     Dates: start: 20060213, end: 20060221
  7. NOVOSEVEN [Suspect]
     Indication: BRAIN CONTUSION
     Dosage: 200 UG, UNK
     Route: 042
     Dates: start: 20060211, end: 20060211
  8. METOCLOPRAMIDE [Concomitant]
     Indication: VOMITING
     Dates: start: 20060211, end: 20060211
  9. PHENYTOIN [Concomitant]
     Indication: PROPHYLAXIS
     Dates: start: 20060211
  10. DIPYRONE INJ [Concomitant]
     Indication: ANALGESIC EFFECT
     Dates: start: 20060212, end: 20060212
  11. DIPYRONE INJ [Concomitant]
     Dates: start: 20060214, end: 20060214
  12. SIMVASTATIN [Concomitant]
     Indication: HYPERLIPIDAEMIA
     Dates: start: 20060213, end: 20060221
  13. ALFACALCIDOL [Concomitant]
     Indication: OSTEOPOROSIS
     Dates: start: 20060213, end: 20060219
  14. LERCANIDIPINE [Concomitant]
     Indication: HYPERTENSION
     Dates: start: 20060213, end: 20060221
  15. CALTRATE [Concomitant]
     Indication: OSTEOPOROSIS
     Dates: start: 20060213, end: 20060216
  16. ENOXAPARIN SODIUM [Concomitant]
     Indication: DEEP VEIN THROMBOSIS
     Dates: start: 20060214, end: 20060221
  17. DISOTHIAZIDE [Concomitant]
     Indication: HYPERTENSION
     Dates: start: 20060213, end: 20060219
  18. POTASSIUM CHLORIDE [Concomitant]
     Indication: HYPOKALAEMIA
     Dates: start: 20060216, end: 20060216
  19. HEPARIN [Concomitant]
     Indication: DEEP VEIN THROMBOSIS
     Dates: start: 20060222, end: 20060222
  20. MILRINONE [Concomitant]
     Indication: CARDIAC FAILURE
     Dates: start: 20060222, end: 20060222
  21. EPINEPHRINE [Concomitant]
     Indication: HYPOTENSION
     Dates: start: 20060222, end: 20060222
  22. NOREPINEPHRINE [Concomitant]
     Indication: HYPOTENSION
     Dates: start: 20060222, end: 20060222
  23. PROPOFOL [Concomitant]
     Indication: ANAESTHESIA
     Dates: start: 20060222, end: 20060222
  24. RANITIDINE [Concomitant]
     Indication: PROPHYLAXIS
     Dates: start: 20060223, end: 20060223
  25. INSULIN HUMAN [Concomitant]
     Indication: METABOLIC DISORDER
     Dates: start: 20060222, end: 20060222
  26. HYDROCORTISONE [Concomitant]
     Indication: SHOCK
     Dates: start: 20060224, end: 20060224
  27. VANCOMYCIN [Concomitant]
     Dates: start: 20060222, end: 20060222
  28. MAGNESIUM SULFATE [Concomitant]
     Indication: MAGNESIUM DEFICIENCY
     Dates: start: 20060224, end: 20060224
  29. CALCIUM GLUCONATE [Concomitant]
     Indication: CALCIUM DEFICIENCY
     Dates: start: 20060224, end: 20060224
  30. PARACETAMOL [Concomitant]
     Indication: HEADACHE
     Dates: start: 20060216, end: 20060216

REACTIONS (3)
  - CARDIOGENIC SHOCK [None]
  - MULTI-ORGAN FAILURE [None]
  - PULMONARY EMBOLISM [None]
